FAERS Safety Report 5220148-1 (Version None)
Quarter: 2006Q4

REPORT INFORMATION
  Report Type: 
  Country: None (occurrence: None)
  Receive Date: 20061121
  Receipt Date: 20060831
  Transmission Date: 20070319
  Serious: No
  Sender: FDA-Public Use
  Company Number: TPA2006A01493

PATIENT
  Age: 3 Decade
  Sex: Female

DRUGS (2)
  1. ROZEREM [Suspect]
     Indication: SLEEP DISORDER
     Dosage: 8 MG, PER ORAL
     Route: 048
  2. MELATONIN (MELATONIN) [Concomitant]

REACTIONS (1)
  - INSOMNIA [None]
